FAERS Safety Report 10176716 (Version 3)
Quarter: 2015Q1

REPORT INFORMATION
  Report Type: Spontaneous
  Country: JP (occurrence: JP)
  Receive Date: 20140516
  Receipt Date: 20150323
  Transmission Date: 20150720
  Serious: Yes (Hospitalization, Disabling, Other)
  Sender: FDA-Public Use
  Company Number: JP-BRISTOL-MYERS SQUIBB COMPANY-20751228

PATIENT
  Age: 55 Year
  Sex: Male

DRUGS (1)
  1. ERBITUX [Suspect]
     Active Substance: CETUXIMAB
     Indication: OROPHARYNGEAL CANCER
     Dosage: 1DF: 5 MG/ML,INITIAL- 680MG THEN 425MG 10JAN13,17JAN13,24JAN13,31JAN13,14FEB13,01MAR13.
     Route: 041
     Dates: start: 20130110

REACTIONS (9)
  - Pulmonary radiation injury [Unknown]
  - Pneumocystis jirovecii pneumonia [Unknown]
  - Mucous membrane disorder [Unknown]
  - Pneumonia [Recovering/Resolving]
  - Adhesion [Recovered/Resolved with Sequelae]
  - Pharyngeal inflammation [Recovered/Resolved with Sequelae]
  - Oropharyngeal scar [Recovered/Resolved with Sequelae]
  - Pneumonia staphylococcal [Unknown]
  - Drug eruption [Unknown]

NARRATIVE: CASE EVENT DATE: 2013
